FAERS Safety Report 10730667 (Version 2)
Quarter: 2015Q1

REPORT INFORMATION
  Report Type: Spontaneous
  Country: HR (occurrence: HR)
  Receive Date: 20150122
  Receipt Date: 20150128
  Transmission Date: 20150721
  Serious: Yes (Hospitalization)
  Sender: FDA-Public Use
  Company Number: HR-TEVA-535252ISR

PATIENT
  Age: 67 Year
  Sex: Male
  Weight: 78.5 kg

DRUGS (2)
  1. CISPLATIN PFIZER [Suspect]
     Active Substance: CISPLATIN
     Indication: TONSIL CANCER
     Route: 041
     Dates: start: 20130711, end: 20130711
  2. CISPLATIN PLIVA [Suspect]
     Active Substance: CISPLATIN
     Indication: TONSIL CANCER
     Dosage: INFUSION AMPOULES, VIALS/BOTTLES
     Route: 041
     Dates: start: 20130801, end: 20130801

REACTIONS (4)
  - Neutropenia [Recovered/Resolved]
  - Oropharyngeal pain [Recovered/Resolved]
  - Leukopenia [Recovered/Resolved]
  - Pyrexia [Recovered/Resolved]

NARRATIVE: CASE EVENT DATE: 20130818
